FAERS Safety Report 11113176 (Version 3)
Quarter: 2015Q2

REPORT INFORMATION
  Report Type: Report from Study
  Country: CO (occurrence: CO)
  Receive Date: 20150514
  Receipt Date: 20150629
  Transmission Date: 20150821
  Serious: No
  Sender: FDA-Public Use
  Company Number: PHHY2015CO058272

PATIENT
  Sex: Male
  Weight: 103 kg

DRUGS (2)
  1. SANDOSTATIN LAR DEPOT [Suspect]
     Active Substance: OCTREOTIDE ACETATE
     Indication: PITUITARY TUMOUR BENIGN
     Dosage: 30 MG, QMO
     Route: 065
  2. DOLEX [Concomitant]
     Active Substance: IBUPROFEN
     Indication: HEADACHE
     Dosage: SPORADICALLY
     Route: 065

REACTIONS (1)
  - Discomfort [Unknown]
